FAERS Safety Report 9677484 (Version 2)
Quarter: 2013Q4

REPORT INFORMATION
  Report Type: Report from Study
  Country: US (occurrence: US)
  Receive Date: 20131108
  Receipt Date: 20131221
  Transmission Date: 20140711
  Serious: Yes (Death)
  Sender: FDA-Public Use
  Company Number: PHEH2013US023242

PATIENT
  Age: 72 Year
  Sex: Male
  Weight: 154 kg

DRUGS (6)
  1. EXELON PATCH [Suspect]
     Indication: DEMENTIA ALZHEIMER^S TYPE
     Dosage: QD
     Route: 062
     Dates: start: 201108, end: 20120315
  2. EXELON PATCH [Suspect]
     Dosage: UNK
     Route: 062
     Dates: end: 201204
  3. EXELON PATCH [Suspect]
     Dosage: UNK
     Route: 062
     Dates: end: 201209
  4. NAMENDA [Concomitant]
     Indication: DEMENTIA
     Dosage: 10 G, QD
     Route: 048
  5. ARICEPT [Concomitant]
     Indication: DEMENTIA
     Dosage: 5 G, QD
     Route: 048
  6. LEXAPRO [Concomitant]
     Indication: DEPRESSION
     Dosage: 5 G, BID
     Route: 048

REACTIONS (5)
  - Dementia [Fatal]
  - No therapeutic response [Fatal]
  - Application site erythema [Recovered/Resolved]
  - Application site pruritus [Recovered/Resolved]
  - Application site rash [Recovered/Resolved]
